FAERS Safety Report 8046492-0 (Version None)
Quarter: 2012Q1

REPORT INFORMATION
  Report Type: 
  Country: None (occurrence: None)
  Receive Date: 20120113
  Receipt Date: 20120112
  Transmission Date: 20120608
  Serious: Yes (Hospitalization)
  Sender: FDA-Public Use
  Company Number: JP-ROCHE-1029888

PATIENT
  Sex: Male
  Weight: 14 kg

DRUGS (8)
  1. SINGULAIR [Concomitant]
     Indication: ASTHMA
     Route: 048
     Dates: start: 20111117
  2. AZITHROMYCIN HYDRATE [Concomitant]
     Indication: PNEUMONIA MYCOPLASMAL
     Route: 048
     Dates: start: 20111113, end: 20111115
  3. ROCEPHIN [Suspect]
     Indication: PNEUMONIA
     Route: 041
     Dates: start: 20111112, end: 20111125
  4. CLOBAZAM [Concomitant]
     Indication: EPILEPSY
     Route: 048
     Dates: start: 20110628
  5. MUCODYNE [Concomitant]
     Indication: PNEUMONIA
     Route: 048
     Dates: start: 20070501
  6. MUCOSOLVAN [Concomitant]
     Indication: PNEUMONIA
     Route: 048
     Dates: start: 20070501
  7. VALPROATE SODIUM [Concomitant]
     Indication: EPILEPSY
     Route: 048
     Dates: start: 20100403
  8. METHYLPREDNISOLONE SODIUM SUCCINATE [Concomitant]
     Indication: ASTHMA
     Route: 041
     Dates: start: 20111112, end: 20111124

REACTIONS (3)
  - C-REACTIVE PROTEIN INCREASED [None]
  - PYREXIA [None]
  - WHITE BLOOD CELL COUNT INCREASED [None]
